FAERS Safety Report 4837390-1 (Version None)
Quarter: 2005Q4

REPORT INFORMATION
  Report Type: 
  Country: None (occurrence: None)
  Receive Date: 20051122
  Receipt Date: 20051109
  Transmission Date: 20060501
  Serious: Yes (Hospitalization)
  Sender: FDA-Public Use
  Company Number: 2005142116

PATIENT
  Sex: Male

DRUGS (6)
  1. NEURONTIN [Suspect]
     Indication: NEUROPATHY PERIPHERAL
     Dosage: 600 MG (300 MG, 2 IN 1 D)
  2. LYRICA [Suspect]
     Indication: NEUROPATHY PERIPHERAL
     Dosage: 75 MG (75 MG, 1 IN 1 D)
     Dates: start: 20051001, end: 20051018
  3. VITAMIN B12 [Concomitant]
  4. OTHER ANTI-ASTHMATICS, INHALANTS (OTHER ANTI-ASTHMATICS, INHALANTS) [Concomitant]
  5. ACETAMINOPHEN [Concomitant]
  6. OTHER THERAPEUTIC PRODUCTS (ALL OTHER THERAPEUTIC PRODUCTS) [Concomitant]

REACTIONS (22)
  - AGGRESSION [None]
  - ANGER [None]
  - ANXIETY [None]
  - BODY TEMPERATURE INCREASED [None]
  - BRONCHITIS [None]
  - CONFUSIONAL STATE [None]
  - DECREASED APPETITE [None]
  - DIZZINESS [None]
  - DRUG TOXICITY [None]
  - DRY MOUTH [None]
  - FATIGUE [None]
  - GENERAL SYMPTOM [None]
  - HYPOMANIA [None]
  - HYPOTENSION [None]
  - MEMORY IMPAIRMENT [None]
  - MOOD ALTERED [None]
  - OXYGEN SATURATION DECREASED [None]
  - PARAESTHESIA [None]
  - TACHYCARDIA [None]
  - TEARFULNESS [None]
  - VITAMIN B12 DECREASED [None]
  - WHEEZING [None]
